FAERS Safety Report 10230544 (Version 2)
Quarter: 2014Q2

REPORT INFORMATION
  Report Type: Spontaneous
  Country: US (occurrence: US)
  Receive Date: 20140611
  Receipt Date: 20140611
  Transmission Date: 20141212
  Serious: No
  Sender: FDA-Public Use
  Company Number: US-INCYTE CORPORATION-2014IN000876

PATIENT
  Sex: Male

DRUGS (8)
  1. JAKAFI [Suspect]
     Indication: MYELOFIBROSIS
     Dosage: 15 MG, BID
     Route: 048
     Dates: start: 20130708
  2. METOPROLOL [Concomitant]
  3. CRESTOR [Concomitant]
  4. HYDROCHLOROTHIAZIDE [Concomitant]
  5. ALLOPURINOL [Concomitant]
  6. NEXIUM                             /01479302/ [Concomitant]
  7. NIACIN [Concomitant]
  8. LOVAZA [Concomitant]

REACTIONS (4)
  - Blood iron decreased [Unknown]
  - Fatigue [Not Recovered/Not Resolved]
  - Splenomegaly [Not Recovered/Not Resolved]
  - Platelet count decreased [Not Recovered/Not Resolved]
